FAERS Safety Report 6263765-2 (Version None)
Quarter: 2009Q3

REPORT INFORMATION
  Report Type: 
  Country: None (occurrence: None)
  Receive Date: 20090710
  Receipt Date: 20090701
  Transmission Date: 20100115
  Serious: Yes (Other)
  Sender: FDA-Public Use
  Company Number: PHHY2009JP19710

PATIENT
  Sex: Male

DRUGS (6)
  1. ZOLEDRONIC ACID [Suspect]
     Indication: METASTASES TO BONE
     Dosage: 4 MG, QMO
     Route: 042
     Dates: start: 20080108, end: 20090119
  2. ENDOXAN [Concomitant]
     Dosage: 100 MG
     Route: 048
     Dates: start: 20071220, end: 20080204
  3. UFT [Concomitant]
     Dosage: 400 MG
     Route: 048
     Dates: start: 20071220, end: 20080204
  4. DECADRON [Concomitant]
     Dosage: 1 MG
     Route: 048
     Dates: start: 20071220, end: 20090119
  5. PROMAC [Concomitant]
     Dosage: 150 MG
     Route: 048
     Dates: start: 20071220, end: 20090119
  6. TAXOTERE [Concomitant]
     Dosage: 60 MG
     Route: 048
     Dates: start: 20080204, end: 20090119

REACTIONS (6)
  - BLOOD CREATININE INCREASED [None]
  - GINGIVAL SWELLING [None]
  - MASTICATION DISORDER [None]
  - OSTEONECROSIS [None]
  - PURULENT DISCHARGE [None]
  - TOOTHACHE [None]
